FAERS Safety Report 6628468-0 (Version None)
Quarter: 2010Q1

REPORT INFORMATION
  Report Type: 
  Country: None (occurrence: None)
  Receive Date: 20100311
  Receipt Date: 20100302
  Transmission Date: 20100710
  Serious: Yes (Other)
  Sender: FDA-Public Use
  Company Number: PT-JNJFOC-20100301190

PATIENT
  Sex: Female

DRUGS (2)
  1. RISPERDAL CONSTA [Suspect]
     Indication: PERSONALITY DISORDER
     Route: 065
  2. RISPERDAL CONSTA [Suspect]
     Route: 065

REACTIONS (3)
  - AMENORRHOEA [None]
  - OFF LABEL USE [None]
  - OVARIAN CYST [None]
